FAERS Safety Report 6361857-0 (Version None)
Quarter: 2009Q3

REPORT INFORMATION
  Report Type: 
  Country: None (occurrence: None)
  Receive Date: 20090821
  Receipt Date: 20090721
  Transmission Date: 20100115
  Serious: No
  Sender: FDA-Public Use
  Company Number: 8049276

PATIENT
  Age: 21 Year
  Sex: Female
  Weight: 58.9 kg

DRUGS (5)
  1. CIMZIA [Suspect]
     Indication: COLITIS ULCERATIVE
     Dosage: 400 MG SC
     Route: 058
     Dates: start: 20090526
  2. CIMZIA [Suspect]
     Indication: CROHN'S DISEASE
     Dosage: 400 MG SC
     Route: 058
     Dates: start: 20090526
  3. LIALDA [Concomitant]
  4. VITAMIN TAB [Concomitant]
  5. ORTHO TRI-CYCLEN [Concomitant]

REACTIONS (6)
  - APHTHOUS STOMATITIS [None]
  - FATIGUE [None]
  - HAEMATOCHEZIA [None]
  - HEADACHE [None]
  - MUCOUS STOOLS [None]
  - VIRAL INFECTION [None]
